FAERS Safety Report 18735758 (Version 5)
Quarter: 2022Q4

REPORT INFORMATION
  Report Type: Report from Study
  Country: CA (occurrence: CA)
  Receive Date: 20210113
  Receipt Date: 20221208
  Transmission Date: 20230112
  Serious: Yes (Other)
  Sender: FDA-Public Use
  Company Number: PHHY2018CA015141

PATIENT
  Age: 46 Year
  Sex: Male

DRUGS (3)
  1. SANDOSTATIN LAR DEPOT [Suspect]
     Active Substance: OCTREOTIDE ACETATE
     Indication: Carcinoid syndrome
     Dosage: 30 MG, QMO (EVERY 4 WEEKS)
     Route: 030
     Dates: start: 20100301
  2. SANDOSTATIN LAR DEPOT [Suspect]
     Active Substance: OCTREOTIDE ACETATE
     Dosage: 20 MG
     Route: 065
     Dates: start: 2020
  3. SANDOSTATIN LAR DEPOT [Suspect]
     Active Substance: OCTREOTIDE ACETATE

REACTIONS (10)
  - Leukaemia [Unknown]
  - Blood pressure increased [Unknown]
  - Body temperature decreased [Unknown]
  - Illness [Unknown]
  - Anaemia [Unknown]
  - Pyrexia [Unknown]
  - Diarrhoea [Unknown]
  - Asthenia [Unknown]
  - Incorrect dose administered [Unknown]
  - Product dose omission issue [Unknown]

NARRATIVE: CASE EVENT DATE: 20180125
